FAERS Safety Report 8286291 (Version 3)
Quarter: 2014Q3

REPORT INFORMATION
  Report Type: Spontaneous
  Country: US (occurrence: US)
  Receive Date: 20111213
  Receipt Date: 20140709
  Transmission Date: 20150326
  Serious: Yes (Hospitalization)
  Sender: FDA-Public Use
  Company Number: US-GLAXOSMITHKLINE-A0906272A

PATIENT
  Sex: Female
  Weight: 72.2 kg

DRUGS (2)
  1. AVANDIA [Suspect]
     Active Substance: ROSIGLITAZONE MALEATE
     Indication: DIABETES MELLITUS
     Dosage: 4MG TWICE PER DAY
     Route: 048
     Dates: start: 1999, end: 2003
  2. AVANDAMET [Suspect]
     Active Substance: METFORMIN HYDROCHLORIDE\ROSIGLITAZONE MALEATE
     Indication: DIABETES MELLITUS
     Route: 048
     Dates: start: 200305

REACTIONS (7)
  - Coronary artery disease [Unknown]
  - Hypertension [Unknown]
  - Coronary artery bypass [Unknown]
  - Myocardial infarction [Not Recovered/Not Resolved]
  - Pulmonary oedema [Unknown]
  - Hyperlipidaemia [Unknown]
  - Cardiac failure congestive [Unknown]
